FAERS Safety Report 9957653 (Version 2)
Quarter: 2014Q1

REPORT INFORMATION
  Report Type: Report from Study
  Country: US (occurrence: US)
  Receive Date: 20140304
  Receipt Date: 20140324
  Transmission Date: 20141002
  Serious: Yes (Hospitalization)
  Sender: FDA-Public Use
  Company Number: US-ROCHE-1358383

PATIENT
  Sex: Female

DRUGS (4)
  1. LUCENTIS [Suspect]
     Indication: DIABETIC RETINOPATHY
     Route: 050
     Dates: end: 201312
  2. AVASTIN [Suspect]
     Indication: DIABETIC RETINOPATHY
     Dosage: BOTH EYES
     Route: 050
     Dates: start: 201401
  3. GABAPENTIN [Concomitant]
     Indication: DIABETIC NEUROPATHY
  4. INSULIN [Concomitant]

REACTIONS (3)
  - Nerve compression [Unknown]
  - Visual acuity reduced [Unknown]
  - Drug ineffective [Unknown]
